FAERS Safety Report 17536590 (Version 2)
Quarter: 2022Q2

REPORT INFORMATION
  Report Type: Report from Study
  Country: CA (occurrence: CA)
  Receive Date: 20200313
  Receipt Date: 20220517
  Transmission Date: 20220721
  Serious: Yes (Death, Hospitalization, Other)
  Sender: FDA-Public Use
  Company Number: CA-ADIENNEP-2014AD000040

PATIENT
  Age: 4 Month
  Sex: Female

DRUGS (9)
  1. THIOTEPA [Suspect]
     Active Substance: THIOTEPA
     Indication: Atypical teratoid/rhabdoid tumour of CNS
     Dosage: 10 MG/KG DAILY
     Route: 065
  2. CARBOPLATIN [Suspect]
     Active Substance: CARBOPLATIN
     Indication: Atypical teratoid/rhabdoid tumour of CNS
     Dosage: 17 MG/KG DAILY
     Route: 065
  3. CISPLATIN [Concomitant]
     Active Substance: CISPLATIN
     Dosage: ()
     Route: 042
  4. CYCLOPHOSPHAMIDE [Concomitant]
     Active Substance: CYCLOPHOSPHAMIDE
     Dosage: ()
     Route: 042
  5. ETOPOSIDE [Concomitant]
     Active Substance: ETOPOSIDE
     Dosage: ()
     Route: 042
  6. METHOTREXATE [Concomitant]
     Active Substance: METHOTREXATE
     Dosage: ()
     Route: 042
  7. VINCRISTINE SULFATE [Concomitant]
     Active Substance: VINCRISTINE SULFATE
     Dosage: ()
  8. METHYLPREDNISOLONE SODIUM SUCCINATE [Suspect]
     Active Substance: METHYLPREDNISOLONE SODIUM SUCCINATE
     Indication: Product used for unknown indication
     Dosage: 1 DOSAGE 20 MG/KG DAILY
     Route: 042
  9. INOMAX [Concomitant]
     Active Substance: NITRIC OXIDE
     Dosage: ()
     Route: 065

REACTIONS (2)
  - Pulmonary arterial hypertension [Fatal]
  - Pulmonary vascular disorder [Fatal]
